FAERS Safety Report 9147145 (Version 1)
Quarter: 2013Q1

REPORT INFORMATION
  Report Type: Spontaneous
  Country: US (occurrence: US)
  Receive Date: 20130307
  Receipt Date: 20130307
  Transmission Date: 20140127
  Serious: Yes (Hospitalization)
  Sender: FDA-Public Use
  Company Number: US-BAYER-2013-028045

PATIENT
  Age: 22 Year
  Sex: Female
  Weight: 61.22 kg

DRUGS (2)
  1. GIANVI [Suspect]
     Indication: CONTRACEPTION
  2. YAZ [Suspect]

REACTIONS (1)
  - Pulmonary embolism [Recovered/Resolved]
